FAERS Safety Report 13879381 (Version 2)
Quarter: 2017Q3

REPORT INFORMATION
  Report Type: Spontaneous
  Country: GB (occurrence: GB)
  Receive Date: 20170817
  Receipt Date: 20170829
  Transmission Date: 20171127
  Serious: Yes (Other)
  Sender: FDA-Public Use
  Company Number: GB-TEVA-794145ACC

PATIENT
  Sex: Male

DRUGS (4)
  1. NEBIVOLOL. [Suspect]
     Active Substance: NEBIVOLOL
     Indication: CARDIAC DISORDER
     Route: 065
     Dates: start: 2010
  2. AMIODARONE [Concomitant]
     Active Substance: AMIODARONE
     Route: 065
  3. NEBIVOLOL. [Suspect]
     Active Substance: NEBIVOLOL
     Dosage: 10 MILLIGRAM DAILY; BACK TO 10MG
     Route: 065
  4. NEBIVOLOL. [Suspect]
     Active Substance: NEBIVOLOL
     Dosage: 15 MILLIGRAM DAILY;
     Route: 065

REACTIONS (3)
  - Ventricular tachycardia [Unknown]
  - Drug ineffective [Unknown]
  - Drug effect decreased [Unknown]
